FAERS Safety Report 4503969-X (Version None)
Quarter: 2004Q3

REPORT INFORMATION
  Report Type: 
  Country: None (occurrence: None)
  Receive Date: 20040927
  Receipt Date: 20040817
  Transmission Date: 20050211
  Serious: No
  Sender: FDA-Public Use
  Company Number: USA040875771

PATIENT
  Age: 54 Year
  Sex: Female
  Weight: 114 kg

DRUGS (3)
  1. STRATTERA [Suspect]
     Indication: ATTENTION DEFICIT/HYPERACTIVITY DISORDER
     Dosage: 40 MG/1 DAY
     Route: 048
     Dates: start: 20040817
  2. DIOVAN [Concomitant]
  3. PHENTERMINE HYDROCHLORIDE [Concomitant]

REACTIONS (7)
  - COLD SWEAT [None]
  - HYPERHIDROSIS [None]
  - MUSCLE CRAMP [None]
  - NAUSEA [None]
  - NERVOUSNESS [None]
  - RETCHING [None]
  - STOMACH DISCOMFORT [None]
